FAERS Safety Report 6398332-3 (Version None)
Quarter: 2009Q4

REPORT INFORMATION
  Report Type: 
  Country: None (occurrence: None)
  Receive Date: 20091013
  Receipt Date: 20090930
  Transmission Date: 20100525
  Serious: Yes (Other)
  Sender: FDA-Public Use
  Company Number: GB-PFIZER INC-2009275996

PATIENT
  Age: 38 Year

DRUGS (2)
  1. CHAMPIX [Suspect]
     Indication: SMOKING CESSATION THERAPY
     Dosage: 1 MG, UNK
     Route: 048
     Dates: start: 20090615, end: 20090625
  2. CETIRIZINE HCL [Concomitant]
     Route: 048

REACTIONS (5)
  - DEPRESSED MOOD [None]
  - HEADACHE [None]
  - IRRITABILITY [None]
  - SPEECH DISORDER [None]
  - TEARFULNESS [None]
